FAERS Safety Report 6702947-X (Version None)
Quarter: 2010Q2

REPORT INFORMATION
  Report Type: 
  Country: None (occurrence: None)
  Receive Date: 20100429
  Receipt Date: 20100423
  Transmission Date: 20101027
  Serious: Yes (Hospitalization)
  Sender: FDA-Public Use
  Company Number: JP-MERCK-1004USA04389

PATIENT
  Age: 73 Year
  Sex: Male

DRUGS (7)
  1. JANUVIA [Suspect]
     Indication: DIABETES MELLITUS
     Route: 048
     Dates: start: 20100209, end: 20100401
  2. ASPIRIN [Concomitant]
     Indication: CEREBRAL INFARCTION
     Route: 048
     Dates: start: 20100209
  3. AVAPRO [Concomitant]
     Indication: HYPERTENSION
     Route: 048
     Dates: start: 20100323
  4. AMLODIN OD [Concomitant]
     Indication: HYPERTENSION
     Route: 048
     Dates: start: 20100123
  5. MINIPRESS [Concomitant]
     Indication: HYPERTENSION
     Route: 048
     Dates: start: 20100126
  6. GLYCORAN [Concomitant]
     Route: 048
     Dates: start: 20100126
  7. AMARYL [Concomitant]
     Route: 048
     Dates: start: 20100309

REACTIONS (1)
  - OEDEMA [None]
